FAERS Safety Report 10368451 (Version 5)
Quarter: 2014Q4

REPORT INFORMATION
  Report Type: Report from Study
  Country: US (occurrence: US)
  Receive Date: 20140807
  Receipt Date: 20141209
  Transmission Date: 20150528
  Serious: Yes (Hospitalization)
  Sender: FDA-Public Use
  Company Number: US-ACTELION-A-US2014-102485

PATIENT
  Age: 67 Year
  Sex: Female

DRUGS (4)
  1. REMODULIN [Suspect]
     Active Substance: TREPROSTINIL
     Indication: PRODUCT USED FOR UNKNOWN INDICATION
     Route: 055
  2. TRACLEER [Suspect]
     Active Substance: BOSENTAN\BOSENTAN MONOHYDRATE
     Indication: PULMONARY ARTERIAL HYPERTENSION
     Dosage: UNK
     Route: 048
  3. COUMADIN [Concomitant]
     Active Substance: WARFARIN SODIUM
  4. SILDENAFIL. [Concomitant]
     Active Substance: SILDENAFIL
     Indication: PULMONARY ARTERIAL HYPERTENSION

REACTIONS (13)
  - Headache [Unknown]
  - Depression [Unknown]
  - Back pain [Unknown]
  - Pain [Unknown]
  - Malaise [Unknown]
  - Lung disorder [Unknown]
  - Pain in jaw [Unknown]
  - Oedema [Unknown]
  - Weight increased [Unknown]
  - Hypersensitivity [Unknown]
  - Diarrhoea [Unknown]
  - Dyspnoea [Unknown]
  - Pain in extremity [Unknown]
